FAERS Safety Report 5478921-0 (Version None)
Quarter: 2007Q4

REPORT INFORMATION
  Report Type: 
  Country: None (occurrence: None)
  Receive Date: 20071002
  Receipt Date: 20070918
  Transmission Date: 20080405
  Serious: Yes (Hospitalization)
  Sender: FDA-Public Use
  Company Number: 2006BI014380

PATIENT
  Age: 54 Year
  Sex: Female

DRUGS (5)
  1. AVONEX [Suspect]
     Indication: MULTIPLE SCLEROSIS
     Dosage: 30 UG;QW;IM
     Route: 030
     Dates: start: 20010801
  2. AVONEX [Suspect]
     Indication: MULTIPLE SCLEROSIS
     Dosage: 30 UG;QW;IM
     Route: 030
     Dates: start: 20050101, end: 20060901
  3. PAXIL [Concomitant]
  4. METAMUCIL [Concomitant]
  5. ALPRAZOLAM [Concomitant]

REACTIONS (8)
  - FALLOPIAN TUBE DISORDER [None]
  - LARGE INTESTINE PERFORATION [None]
  - LYMPH NODE CANCER METASTATIC [None]
  - METASTASES TO RECTUM [None]
  - PELVIC NEOPLASM [None]
  - PELVIC PERITONEAL ADHESIONS [None]
  - RECTOSIGMOID CANCER [None]
  - TRANSITIONAL CELL CARCINOMA [None]
